FAERS Safety Report 4459921-6 (Version None)
Quarter: 2004Q3

REPORT INFORMATION
  Report Type: 
  Country: None (occurrence: None)
  Receive Date: 20040928
  Receipt Date: 20030905
  Transmission Date: 20050211
  Serious: No
  Sender: FDA-Public Use
  Company Number: US-GLAXOSMITHKLINE-A0424878A

PATIENT
  Sex: Female

DRUGS (6)
  1. SEREVENT [Suspect]
     Dosage: 1PUFF TWICE PER DAY
     Route: 055
     Dates: start: 20030826, end: 20030902
  2. ALBUTEROL [Concomitant]
  3. NITRO PATCH [Concomitant]
  4. ADVAIR DISKUS 100/50 [Suspect]
     Indication: ILL-DEFINED DISORDER
     Route: 055
     Dates: start: 20010101
  5. ATROVENT [Concomitant]
  6. FLOVENT [Concomitant]

REACTIONS (2)
  - CHEST DISCOMFORT [None]
  - THROAT IRRITATION [None]
